FAERS Safety Report 10152531 (Version 1)
Quarter: 2014Q2

REPORT INFORMATION
  Report Type: Report from Study
  Country: CA (occurrence: CA)
  Receive Date: 20140505
  Receipt Date: 20140505
  Transmission Date: 20141212
  Serious: Yes (Other)
  Sender: FDA-Public Use
  Company Number: CA-JNJFOC-20140420801

PATIENT
  Age: 29 Year
  Sex: Female
  Weight: 64 kg

DRUGS (6)
  1. REMICADE [Suspect]
     Indication: COLITIS ULCERATIVE
     Route: 042
     Dates: start: 20091217
  2. IMURAN [Concomitant]
     Route: 048
  3. BENADRYL [Concomitant]
     Indication: PREMEDICATION
     Route: 042
  4. BENADRYL [Concomitant]
     Indication: PREMEDICATION
     Route: 048
  5. TYLENOL [Concomitant]
     Indication: PREMEDICATION
     Route: 048
  6. SOLUCORTEF [Concomitant]
     Indication: PREMEDICATION
     Route: 042

REACTIONS (1)
  - Cervix carcinoma [Unknown]
